FAERS Safety Report 14829210 (Version 1)
Quarter: 2018Q2

REPORT INFORMATION
  Report Type: Spontaneous
  Country: US (occurrence: US)
  Receive Date: 20180407
  Receipt Date: 20180407
  Transmission Date: 20180711
  Serious: No
  Sender: FDA-Public Use
  Company Number: None

PATIENT
  Age: 57 Year
  Sex: Female
  Weight: 115.2 kg

DRUGS (16)
  1. XYZAL [Suspect]
     Active Substance: LEVOCETIRIZINE DIHYDROCHLORIDE
     Indication: MULTIPLE ALLERGIES
     Dosage: ?          QUANTITY:1 TABLET(S);?
     Route: 048
  2. SINGULAIR [Concomitant]
     Active Substance: MONTELUKAST SODIUM
  3. VOLTARIN [Concomitant]
  4. CALCIUM [Concomitant]
     Active Substance: CALCIUM
  5. VITAMIN B [Concomitant]
     Active Substance: VITAMIN B
  6. SAM-E [Concomitant]
     Active Substance: ADEMETIONINE
  7. DMV [Concomitant]
  8. MELATONIN [Concomitant]
     Active Substance: MELATONIN
  9. IRON [Concomitant]
     Active Substance: IRON
  10. SIMVISTATIN [Concomitant]
     Active Substance: SIMVASTATIN
  11. EFFEXOR [Concomitant]
     Active Substance: VENLAFAXINE HYDROCHLORIDE
  12. VITAMIN D [Concomitant]
     Active Substance: CHOLECALCIFEROL
  13. LISINOPRIL. [Concomitant]
     Active Substance: LISINOPRIL
  14. ADVAIR HFA [Concomitant]
     Active Substance: FLUTICASONE PROPIONATE\SALMETEROL XINAFOATE
  15. OMEPRAZOLE. [Concomitant]
     Active Substance: OMEPRAZOLE
  16. ALPHA LIPOIC ACID [Concomitant]
     Active Substance: .ALPHA.-LIPOIC ACID

REACTIONS (3)
  - Anxiety [None]
  - Pruritus [None]
  - Palpitations [None]

NARRATIVE: CASE EVENT DATE: 20180406
